FAERS Safety Report 24921278 (Version 1)
Quarter: 2025Q1

REPORT INFORMATION
  Report Type: Spontaneous
  Country: CA (occurrence: CA)
  Receive Date: 20250204
  Receipt Date: 20250204
  Transmission Date: 20250409
  Serious: Yes (Hospitalization, Other)
  Sender: AUROBINDO
  Company Number: CA-AUROBINDO-AUR-APL-2025-006074

PATIENT
  Age: 45 Year
  Sex: Female

DRUGS (6)
  1. ARIPIPRAZOLE [Suspect]
     Active Substance: ARIPIPRAZOLE
     Indication: Major depression
     Dosage: 5 MILLIGRAM, ONCE A DAY
     Route: 065
  2. ARIPIPRAZOLE [Suspect]
     Active Substance: ARIPIPRAZOLE
     Dosage: 15 MILLIGRAM, ONCE A DAY
     Route: 065
  3. MODAFINIL [Suspect]
     Active Substance: MODAFINIL
     Indication: Major depression
     Dosage: 100 MILLIGRAM, ONCE A DAY
     Route: 065
  4. CLONAZEPAM [Suspect]
     Active Substance: CLONAZEPAM
     Indication: Major depression
     Dosage: 0.75 MILLIGRAM, ONCE A DAY
     Route: 065
  5. TEMAZEPAM [Suspect]
     Active Substance: TEMAZEPAM
     Indication: Major depression
     Dosage: 15 MILLIGRAM, ONCE A DAY
     Route: 065
  6. DULOXETINE HYDROCHLORIDE [Suspect]
     Active Substance: DULOXETINE HYDROCHLORIDE
     Indication: Major depression
     Dosage: 120 MILLIGRAM, ONCE A DAY
     Route: 065

REACTIONS (2)
  - Disease progression [Unknown]
  - Disease recurrence [Unknown]
